FAERS Safety Report 5006915-8 (Version None)
Quarter: 2006Q1

REPORT INFORMATION
  Report Type: 
  Country: None (occurrence: None)
  Receive Date: 20060320
  Receipt Date: 20051031
  Transmission Date: 20060701
  Serious: Yes (Hospitalization)
  Sender: FDA-Public Use
  Company Number: 2005-10-1740

PATIENT
  Age: 55 Year
  Sex: Female

DRUGS (7)
  1. PEG-INTRON [Suspect]
     Indication: HEPATITIS C
     Dosage: 150 MCG QWK SUBCUTANEOUS
     Route: 058
     Dates: start: 20050818
  2. RIBAVIRIN [Suspect]
     Indication: HEPATITIS C
     Dosage: 1200 MG QD ORAL
     Route: 048
     Dates: start: 20050818
  3. LISINOPRIL [Concomitant]
  4. FLEXERIL [Concomitant]
  5. ELAVIL [Concomitant]
  6. TOPROL-XL [Concomitant]
  7. EXCEDRIN (MIGRAINE) [Concomitant]

REACTIONS (1)
  - ANAEMIA [None]
